FAERS Safety Report 6762528-9 (Version None)
Quarter: 2010Q2

REPORT INFORMATION
  Report Type: 
  Country: None (occurrence: None)
  Receive Date: 20100609
  Receipt Date: 20100601
  Transmission Date: 20101027
  Serious: Yes (Other)
  Sender: FDA-Public Use
  Company Number: US-SANOFI-AVENTIS-2010SA032492

PATIENT
  Age: 60 Year
  Sex: Female

DRUGS (3)
  1. LANTUS [Suspect]
     Indication: DIABETES MELLITUS
     Dosage: DOSE:30 UNIT(S)
     Route: 058
     Dates: start: 20090101
  2. SOLOSTAR [Suspect]
     Dates: start: 20090101
  3. NOVOLOG [Concomitant]
     Dosage: 20 UNITS PLUS SLIDING SCALE WITH MEALS DOSE:20 UNIT(S)
     Route: 065

REACTIONS (4)
  - CORONARY ARTERY OCCLUSION [None]
  - HYPERGLYCAEMIA [None]
  - HYPOAESTHESIA [None]
  - PAIN [None]
